FAERS Safety Report 4499213-2 (Version None)
Quarter: 2004Q4

REPORT INFORMATION
  Report Type: 
  Country: None (occurrence: None)
  Receive Date: 20041111
  Receipt Date: 20041110
  Transmission Date: 20050328
  Serious: Yes (Other)
  Sender: FDA-Public Use
  Company Number: US-GLAXOSMITHKLINE-A0533459A

PATIENT
  Age: 42 Year
  Sex: Female

DRUGS (2)
  1. WELLBUTRIN [Suspect]
     Indication: DEPRESSION
     Dosage: 150MG PER DAY
     Route: 048
  2. LEVOXINE [Concomitant]

REACTIONS (4)
  - ALOPECIA [None]
  - DEAFNESS [None]
  - DERMATITIS EXFOLIATIVE [None]
  - THIRST [None]
